FAERS Safety Report 6782093-X (Version None)
Quarter: 2010Q2

REPORT INFORMATION
  Report Type: 
  Country: None (occurrence: None)
  Receive Date: 20100621
  Receipt Date: 20100608
  Transmission Date: 20101027
  Serious: Yes (Other)
  Sender: FDA-Public Use
  Company Number: FR-BAYER-201028328GPV

PATIENT
  Age: 47 Year
  Sex: Female

DRUGS (2)
  1. MIRENA [Suspect]
     Indication: DRUG USE FOR UNKNOWN INDICATION
     Route: 015
     Dates: start: 20020101, end: 20090101
  2. MIRENA [Suspect]
     Route: 015
     Dates: start: 20090101

REACTIONS (3)
  - ASCITES [None]
  - LYMPHANGIOLEIOMYOMATOSIS [None]
  - PLEURAL EFFUSION [None]
